FAERS Safety Report 23981855 (Version 2)
Quarter: 2024Q2

REPORT INFORMATION
  Report Type: Spontaneous
  Country: DE (occurrence: DE)
  Receive Date: 20240617
  Receipt Date: 20240619
  Transmission Date: 20240716
  Serious: Yes (Other)
  Sender: FDA-Public Use
  Company Number: DE-002147023-NVSC2022DE263498

PATIENT
  Age: 29 Year
  Sex: Female

DRUGS (1)
  1. ADALIMUMAB [Suspect]
     Active Substance: ADALIMUMAB\ISOPROPYL ALCOHOL
     Indication: Metastatic cutaneous Crohn^s disease
     Dosage: UNK
     Route: 065
     Dates: start: 202112

REACTIONS (2)
  - Fistula [Recovered/Resolved]
  - Drug ineffective [Unknown]
